FAERS Safety Report 5455597-X (Version None)
Quarter: 2007Q3

REPORT INFORMATION
  Report Type: 
  Country: None (occurrence: None)
  Receive Date: 20070918
  Receipt Date: 20070228
  Transmission Date: 20080115
  Serious: Yes (Other)
  Sender: FDA-Public Use
  Company Number: US-ASTRAZENECA-2006UW21873

PATIENT
  Sex: Female
  Weight: 108.6 kg

DRUGS (4)
  1. SEROQUEL [Suspect]
     Indication: DEPRESSION
     Route: 048
     Dates: start: 20010101
  2. SEROQUEL [Suspect]
     Route: 048
     Dates: start: 20030101
  3. SEROQUEL [Suspect]
     Route: 048
     Dates: start: 20030701, end: 20050101
  4. BUPROPION HCL [Concomitant]
     Dates: start: 20050801

REACTIONS (4)
  - DIABETES MELLITUS [None]
  - DIABETIC COMA [None]
  - KETOACIDOSIS [None]
  - PANCREATITIS [None]
